FAERS Safety Report 7100173-6 (Version None)
Quarter: 2010Q4

REPORT INFORMATION
  Report Type: 
  Country: None (occurrence: None)
  Receive Date: 20101112
  Receipt Date: 20100726
  Transmission Date: 20110411
  Serious: No
  Sender: FDA-Public Use
  Company Number: A0871407A

PATIENT
  Age: 73 Year
  Sex: Female

DRUGS (7)
  1. CARVEDILOL [Suspect]
     Dosage: 25MG TWICE PER DAY
     Route: 048
     Dates: start: 20100101
  2. SYNTHROID [Concomitant]
  3. DIABETES MEDICATION [Concomitant]
  4. SIMVASTATIN [Concomitant]
  5. METFORMIN [Concomitant]
  6. GLIPIZIDE [Concomitant]
  7. MECLIZINE [Concomitant]

REACTIONS (3)
  - HYPERSENSITIVITY [None]
  - OEDEMA [None]
  - PALPITATIONS [None]
